FAERS Safety Report 8564982-9 (Version None)
Quarter: 2012Q3

REPORT INFORMATION
  Report Type: 
  Country: None (occurrence: None)
  Receive Date: 20120803
  Receipt Date: 20120726
  Transmission Date: 20120928
  Serious: Yes (Hospitalization)
  Sender: FDA-Public Use
  Company Number: DE-ABBOTT-12P-062-0961565-00

PATIENT
  Sex: Female

DRUGS (4)
  1. PENTASA [Concomitant]
     Indication: CROHN'S DISEASE
  2. ALL OTHER THERAPEUTIC PRODUCTS [Concomitant]
     Indication: GASTRIC DISORDER
  3. HUMIRA [Suspect]
     Indication: CROHN'S DISEASE
     Route: 058
     Dates: start: 20100712, end: 20120201
  4. CORTISONE ACETATE [Concomitant]
     Indication: PRODUCT USED FOR UNKNOWN INDICATION

REACTIONS (2)
  - COLONIC STENOSIS [None]
  - ANXIETY [None]
